FAERS Safety Report 23676944 (Version 1)
Quarter: 2024Q1

REPORT INFORMATION
  Report Type: Spontaneous
  Country: US (occurrence: US)
  Receive Date: 20240327
  Receipt Date: 20240327
  Transmission Date: 20240410
  Serious: No
  Sender: FDA-Public Use
  Company Number: US-Hill Dermaceuticals, Inc.-2154860

PATIENT
  Sex: Female

DRUGS (10)
  1. FLUOCINOLONE ACETONIDE [Suspect]
     Active Substance: FLUOCINOLONE ACETONIDE
     Indication: Product used for unknown indication
  2. OTEZLA [Suspect]
     Active Substance: APREMILAST
  3. TRIAMCINOLONE [Suspect]
     Active Substance: TRIAMCINOLONE
  4. DESOXIMETASONE [Suspect]
     Active Substance: DESOXIMETASONE
  5. HYDROCORTISONE [Suspect]
     Active Substance: HYDROCORTISONE
  6. FLUOCINONIDE [Suspect]
     Active Substance: FLUOCINONIDE
  7. MOMETASONE [Suspect]
     Active Substance: MOMETASONE
  8. SELENIUM SULFIDE [Suspect]
     Active Substance: SELENIUM SULFIDE
  9. CLOBETASOL PROPIONATE [Suspect]
     Active Substance: CLOBETASOL PROPIONATE
  10. HUMIRA [Suspect]
     Active Substance: ADALIMUMAB

REACTIONS (1)
  - Therapeutic product ineffective [Unknown]
